FAERS Safety Report 4635166-1 (Version None)
Quarter: 2005Q2

REPORT INFORMATION
  Report Type: 
  Country: None (occurrence: None)
  Receive Date: 20050414
  Receipt Date: 20050401
  Transmission Date: 20051028
  Serious: Yes (Hospitalization)
  Sender: FDA-Public Use
  Company Number: AT-GLAXOSMITHKLINE-B0376428A

PATIENT
  Age: 53 Year
  Sex: Female

DRUGS (4)
  1. GW679769 [Suspect]
     Dosage: 150MG PER DAY
     Route: 048
     Dates: start: 20050323, end: 20050323
  2. DEXAMETHASONE [Suspect]
     Dosage: 8MG SINGLE DOSE
     Route: 042
     Dates: start: 20050323, end: 20050323
  3. ONDANSETRON [Suspect]
     Dosage: 8MG PER DAY
     Route: 048
     Dates: start: 20050323, end: 20050325
  4. TAXOTERE [Suspect]
     Indication: NEOPLASM MALIGNANT
     Route: 042
     Dates: start: 20050323, end: 20050323

REACTIONS (1)
  - FATIGUE [None]
